FAERS Safety Report 5030023-3 (Version None)
Quarter: 2006Q2

REPORT INFORMATION
  Report Type: 
  Country: None (occurrence: None)
  Receive Date: 20060614
  Receipt Date: 20060531
  Transmission Date: 20061013
  Serious: Yes (Other)
  Sender: FDA-Public Use
  Company Number: 2006-05-2229

PATIENT
  Sex: 0

DRUGS (1)
  1. NASONEX [Suspect]
     Indication: POSTOPERATIVE CARE
     Dosage: NASAL SPRAY

REACTIONS (1)
  - ANAPHYLACTIC SHOCK [None]
